FAERS Safety Report 18555494 (Version 1)
Quarter: 2020Q4

REPORT INFORMATION
  Report Type: Report from Study
  Country: US (occurrence: DE)
  Receive Date: 20201127
  Receipt Date: 20201127
  Transmission Date: 20210114
  Serious: Yes (Hospitalization)
  Sender: FDA-Public Use
  Company Number: DE-SHIRE-DE202029230

PATIENT
  Age: 2 Year
  Sex: Female
  Weight: 10 kg

DRUGS (8)
  1. TEDUGLUTIDE [Suspect]
     Active Substance: TEDUGLUTIDE
     Indication: SHORT-BOWEL SYNDROME
     Dosage: 1.25/0.18 MILLIGRAM PER MILLILITRE, 1X/DAY:QD
     Route: 058
     Dates: start: 20200805
  2. TEDUGLUTIDE [Suspect]
     Active Substance: TEDUGLUTIDE
     Dosage: 1.25 MILLIGRAM PER 0.2 MILLILITRE, QD
     Route: 058
     Dates: start: 20200805
  3. TEDUGLUTIDE [Suspect]
     Active Substance: TEDUGLUTIDE
     Indication: SHORT-BOWEL SYNDROME
     Dosage: 1.25/0.18 MILLIGRAM PER MILLILITRE, 1X/DAY:QD
     Route: 058
     Dates: start: 20200805
  4. TEDUGLUTIDE [Suspect]
     Active Substance: TEDUGLUTIDE
     Dosage: 1.25 MILLIGRAM PER 0.2 MILLILITRE, QD
     Route: 058
     Dates: start: 20200805
  5. TEDUGLUTIDE [Suspect]
     Active Substance: TEDUGLUTIDE
     Dosage: 1.25 MILLIGRAM PER 0.2 MILLILITRE, QD
     Route: 058
     Dates: start: 20200805
  6. TEDUGLUTIDE [Suspect]
     Active Substance: TEDUGLUTIDE
     Indication: SHORT-BOWEL SYNDROME
     Dosage: 1.25/0.18 MILLIGRAM PER MILLILITRE, 1X/DAY:QD
     Route: 058
     Dates: start: 20200805
  7. TEDUGLUTIDE [Suspect]
     Active Substance: TEDUGLUTIDE
     Indication: SHORT-BOWEL SYNDROME
     Dosage: 1.25/0.18 MILLIGRAM PER MILLILITRE, 1X/DAY:QD
     Route: 058
     Dates: start: 20200805
  8. TEDUGLUTIDE [Suspect]
     Active Substance: TEDUGLUTIDE
     Dosage: 1.25 MILLIGRAM PER 0.2 MILLILITRE, QD
     Route: 058
     Dates: start: 20200805

REACTIONS (2)
  - Upper respiratory tract infection [Recovering/Resolving]
  - Device leakage [Recovered/Resolved]

NARRATIVE: CASE EVENT DATE: 20200905
